FAERS Safety Report 16105293 (Version 3)
Quarter: 2019Q2

REPORT INFORMATION
  Report Type: Spontaneous
  Country: JP (occurrence: JP)
  Receive Date: 20190322
  Receipt Date: 20190524
  Transmission Date: 20190711
  Serious: Yes (Life-Threatening, Hospitalization, Other)
  Sender: FDA-Public Use
  Company Number: JP-JNJFOC-20190325225

PATIENT
  Age: 65 Year
  Sex: Female

DRUGS (7)
  1. ROTIGOTINE [Concomitant]
     Active Substance: ROTIGOTINE
     Indication: PARKINSON^S DISEASE
     Dosage: INCREASED AS A CONVERTED AMOUNT
     Route: 065
  2. CARBIDOPA/LEVODOPA [Concomitant]
     Active Substance: CARBIDOPA\LEVODOPA
     Indication: PARKINSON^S DISEASE
     Dosage: FOR 5 YEARS
     Route: 045
  3. AMANTADINE. [Suspect]
     Active Substance: AMANTADINE HYDROCHLORIDE
     Indication: PARKINSON^S DISEASE
     Route: 048
  4. RISPERDAL [Suspect]
     Active Substance: RISPERIDONE
     Indication: AGITATION
     Dosage: ADMINISTERED IN SINGLE DOSE; IN TOTAL
     Route: 048
  5. CARBIDOPA/LEVODOPA [Concomitant]
     Active Substance: CARBIDOPA\LEVODOPA
     Indication: PARKINSON^S DISEASE
     Dosage: WERE CONTINUED VIA NASOGASTRIC TUBE
     Route: 045
  6. CHLORPROMAZINE. [Concomitant]
     Active Substance: CHLORPROMAZINE
     Indication: AGITATION
     Dosage: ADMINISTERED IN SINGLE DOSE; IN TOTAL
     Route: 065
  7. ROTIGOTINE [Concomitant]
     Active Substance: ROTIGOTINE
     Indication: PARKINSON^S DISEASE
     Dosage: INCREASED AS A CONVERTED AMOUNT
     Route: 065

REACTIONS (5)
  - Off label use [Unknown]
  - Neuroleptic malignant syndrome [Recovered/Resolved]
  - Cardio-respiratory arrest [Recovered/Resolved]
  - Hyperkalaemia [Recovered/Resolved]
  - Product use in unapproved indication [Unknown]
